FAERS Safety Report 24929637 (Version 1)
Quarter: 2025Q1

REPORT INFORMATION
  Report Type: Spontaneous
  Country: US (occurrence: US)
  Receive Date: 20250205
  Receipt Date: 20250205
  Transmission Date: 20250409
  Serious: No
  Sender: MERCK
  Company Number: US-009507513-2502USA001566

PATIENT
  Age: 27 Year
  Sex: Male

DRUGS (2)
  1. TEMODAR [Suspect]
     Active Substance: TEMOZOLOMIDE
     Indication: Vipoma
  2. CAPECITABINE [Concomitant]
     Active Substance: CAPECITABINE
     Indication: Vipoma

REACTIONS (1)
  - Product use in unapproved indication [Unknown]
